FAERS Safety Report 14088402 (Version 2)
Quarter: 2017Q4

REPORT INFORMATION
  Report Type: Spontaneous
  Country: TR (occurrence: TR)
  Receive Date: 20171013
  Receipt Date: 20171030
  Transmission Date: 20180321
  Serious: Yes (Death, Hospitalization, Other)
  Sender: FDA-Public Use
  Company Number: TR-B.I. PHARMACEUTICALS,INC./RIDGEFIELD-2017-BI-054894

PATIENT
  Age: 85 Year
  Sex: Male
  Weight: 100 kg

DRUGS (1)
  1. PRADAXA [Suspect]
     Active Substance: DABIGATRAN ETEXILATE MESYLATE
     Indication: ATRIAL FIBRILLATION
     Route: 065

REACTIONS (5)
  - Right ventricular failure [Unknown]
  - Bladder catheterisation [Fatal]
  - Cardiogenic shock [Fatal]
  - Prostatomegaly [Unknown]
  - Haemorrhage [Recovered/Resolved]
